FAERS Safety Report 6534233-5 (Version None)
Quarter: 2010Q1

REPORT INFORMATION
  Report Type: 
  Country: None (occurrence: None)
  Receive Date: 20100112
  Receipt Date: 20100106
  Transmission Date: 20100710
  Serious: Yes (Hospitalization, Other)
  Sender: FDA-Public Use
  Company Number: PHHY2010BR00611

PATIENT
  Sex: Female

DRUGS (2)
  1. DIOVAN [Suspect]
     Dosage: UNK
     Route: 065
  2. DIOVAN HCT [Suspect]
     Dosage: UNK
     Route: 065

REACTIONS (1)
  - LIVER OPERATION [None]
